FAERS Safety Report 9660960 (Version 1)
Quarter: 2013Q4

REPORT INFORMATION
  Report Type: Spontaneous
  Country: US (occurrence: US)
  Receive Date: 20131031
  Receipt Date: 20131031
  Transmission Date: 20140711
  Serious: Yes (Hospitalization)
  Sender: FDA-Public Use
  Company Number: US-UCBSA-101705

PATIENT
  Age: 45 Year
  Sex: Female

DRUGS (7)
  1. CIMZIA [Suspect]
     Indication: CROHN^S DISEASE
  2. ASPIRIN [Concomitant]
  3. HYDROCHLOROTHIAZIDE [Concomitant]
  4. LOVENOX [Concomitant]
  5. LISINOPRIL [Concomitant]
  6. PREDNISONE [Concomitant]
  7. VANCOMYCIN [Concomitant]

REACTIONS (1)
  - Pain [Not Recovered/Not Resolved]
